FAERS Safety Report 5852743-0 (Version None)
Quarter: 2008Q3

REPORT INFORMATION
  Report Type: 
  Country: None (occurrence: None)
  Receive Date: 20080821
  Receipt Date: 20080818
  Transmission Date: 20090109
  Serious: Yes (Other)
  Sender: FDA-Public Use
  Company Number: DE-AVENTIS-200811909DE

PATIENT
  Age: 70 Year
  Sex: Female
  Weight: 90 kg

DRUGS (9)
  1. ARAVA [Suspect]
     Route: 048
     Dates: start: 20080226, end: 20080228
  2. ARAVA [Suspect]
     Route: 048
     Dates: start: 20080305, end: 20080513
  3. PREDNISOLON [Concomitant]
     Route: 048
  4. NOVAMINSULFON [Concomitant]
     Dosage: DOSE: 15 TO 20 DROPS
     Route: 048
  5. IBUPROFEN [Concomitant]
  6. THEOPHYLLINE [Concomitant]
  7. EPROSARTAN [Concomitant]
     Indication: HYPERTENSION
  8. TRIAMTEREN [Concomitant]
     Indication: HYPERTENSION
  9. LANSOPRAZOL [Concomitant]

REACTIONS (1)
  - LIVER FUNCTION TEST ABNORMAL [None]
